FAERS Safety Report 14767963 (Version 2)
Quarter: 2018Q2

REPORT INFORMATION
  Report Type: Spontaneous
  Country: CA (occurrence: CA)
  Receive Date: 20180417
  Receipt Date: 20180501
  Transmission Date: 20180711
  Serious: Yes (Death, Other)
  Sender: FDA-Public Use
  Company Number: CA-AMGEN-CANSP2018050459

PATIENT
  Age: 17 Year
  Sex: Female

DRUGS (6)
  1. PREDNISONE. [Concomitant]
     Active Substance: PREDNISONE
  2. ETANERCEPT [Suspect]
     Active Substance: ETANERCEPT
     Indication: JUVENILE IDIOPATHIC ARTHRITIS
     Dosage: 25 MG, 2 TIMES/WK
     Route: 065
  3. METHOTREXATE. [Concomitant]
     Active Substance: METHOTREXATE
     Dosage: UNK
  4. LEFLUNOMIDE. [Concomitant]
     Active Substance: LEFLUNOMIDE
     Dosage: UNK
  5. FOLIC ACID. [Concomitant]
     Active Substance: FOLIC ACID
  6. NAPROSYN [Concomitant]
     Active Substance: NAPROXEN

REACTIONS (10)
  - Papilloedema [Unknown]
  - Weight decreased [Unknown]
  - Dysphonia [Unknown]
  - Death [Fatal]
  - Ewing^s sarcoma [Unknown]
  - Facial paresis [Unknown]
  - Dysphagia [Unknown]
  - Vomiting [Unknown]
  - Ataxia [Unknown]
  - Headache [Unknown]
